FAERS Safety Report 8131612-X (Version None)
Quarter: 2012Q1

REPORT INFORMATION
  Report Type: 
  Country: None (occurrence: None)
  Receive Date: 20120213
  Receipt Date: 20120210
  Transmission Date: 20120608
  Serious: No
  Sender: FDA-Public Use
  Company Number: US-PFIZER INC-2012037231

PATIENT
  Sex: Female
  Weight: 61.224 kg

DRUGS (8)
  1. CHANTIX [Suspect]
     Indication: SMOKING CESSATION THERAPY
     Dosage: 1 MG, 1X/DAY
     Route: 048
  2. MULTI-VITAMINS [Concomitant]
     Dosage: UNK
  3. CHANTIX [Suspect]
     Dosage: 1 MG, 1X/DAY
     Route: 048
     Dates: start: 20120210
  4. SYNTHROID [Concomitant]
     Indication: HYPERTHYROIDISM
     Dosage: UNK
  5. TRAZODONE [Concomitant]
     Indication: DEPRESSION
     Dosage: UNK
  6. CYMBALTA [Concomitant]
     Dosage: 60 MG, UNK
  7. COZAAR [Concomitant]
     Dosage: UNK
  8. ASPIRIN [Concomitant]
     Dosage: UNK

REACTIONS (2)
  - NAUSEA [None]
  - DRUG ADMINISTRATION ERROR [None]
